FAERS Safety Report 6826700-1 (Version None)
Quarter: 2010Q3

REPORT INFORMATION
  Report Type: 
  Country: None (occurrence: None)
  Receive Date: 20100709
  Receipt Date: 20100701
  Transmission Date: 20110219
  Serious: Yes (Other)
  Sender: FDA-Public Use
  Company Number: US-JNJFOC-20100700394

PATIENT
  Sex: Male
  Weight: 68.04 kg

DRUGS (4)
  1. FENTANYL-100 [Suspect]
     Indication: BACK PAIN
     Dosage: 75 MCG/PATCH/1 IN UNK HOURS
     Route: 062
  2. DURAGESIC-100 [Suspect]
     Indication: PRODUCT USED FOR UNKNOWN INDICATION
     Route: 062
  3. DURAGESIC-100 [Suspect]
     Indication: PAIN
     Route: 062
  4. DURAGESIC-100 [Suspect]
     Route: 062

REACTIONS (3)
  - BRONCHITIS [None]
  - HYPERHIDROSIS [None]
  - PNEUMONIA [None]
